FAERS Safety Report 8250627-4 (Version None)
Quarter: 2012Q2

REPORT INFORMATION
  Report Type: 
  Country: None (occurrence: None)
  Receive Date: 20120402
  Receipt Date: 20120327
  Transmission Date: 20120825
  Serious: Yes (Death)
  Sender: FDA-Public Use
  Company Number: US-ASTRAZENECA-2012SE10464

PATIENT
  Age: 81 Year
  Sex: Female

DRUGS (2)
  1. ASPIRIN [Concomitant]
     Dosage: LOW DOSE
  2. BRILINTA [Suspect]
     Route: 048
     Dates: start: 20120131

REACTIONS (2)
  - HEAD INJURY [None]
  - FALL [None]
